FAERS Safety Report 6153706-0 (Version None)
Quarter: 2009Q2

REPORT INFORMATION
  Report Type: 
  Country: None (occurrence: None)
  Receive Date: 20090410
  Receipt Date: 20090401
  Transmission Date: 20091009
  Serious: Yes (Other)
  Sender: FDA-Public Use
  Company Number: CHPA2009US08565

PATIENT
  Age: 72 Year
  Sex: Female
  Weight: 97.5 kg

DRUGS (8)
  1. GAS-X (NCH) (SIMETHICONE) DISPERSIBLE TABLET [Suspect]
     Indication: FLATULENCE
     Dosage: 125 TO 187.5 MG QD ORAL; 62.5 MG QD ORAL
     Route: 048
     Dates: start: 20090320, end: 20090401
  2. GAS-X (NCH) (SIMETHICONE) DISPERSIBLE TABLET [Suspect]
     Indication: FLATULENCE
     Dosage: 125 TO 187.5 MG QD ORAL; 62.5 MG QD ORAL
     Route: 048
     Dates: start: 20090403
  3. NEXIUM [Concomitant]
  4. INSULIN (INSULIN) [Concomitant]
  5. LISINOPRIL [Concomitant]
  6. TRICOR [Concomitant]
  7. SIMVASTATIN [Concomitant]
  8. FEMARA [Concomitant]

REACTIONS (1)
  - BLOOD GLUCOSE INCREASED [None]
